FAERS Safety Report 4556031-4 (Version None)
Quarter: 2005Q1

REPORT INFORMATION
  Report Type: 
  Country: None (occurrence: None)
  Receive Date: 20050119
  Receipt Date: 20041021
  Transmission Date: 20050727
  Serious: Yes (Life-Threatening, Hospitalization)
  Sender: FDA-Public Use
  Company Number: US-GLAXOSMITHKLINE-A0539914A

PATIENT
  Sex: Male

DRUGS (3)
  1. LAMICTAL [Suspect]
     Indication: BIPOLAR DISORDER
     Route: 048
  2. UNSPECIFIED MEDICATIONS [Concomitant]
  3. ALCOHOL [Concomitant]

REACTIONS (7)
  - AFFECT LABILITY [None]
  - ALCOHOLISM [None]
  - EYE IRRITATION [None]
  - ORAL SOFT TISSUE DISORDER [None]
  - RASH [None]
  - STEVENS-JOHNSON SYNDROME [None]
  - TREATMENT NONCOMPLIANCE [None]
